FAERS Safety Report 16916320 (Version 2)
Quarter: 2019Q4

REPORT INFORMATION
  Report Type: Spontaneous
  Country: JP (occurrence: JP)
  Receive Date: 20191014
  Receipt Date: 20191111
  Transmission Date: 20200122
  Serious: Yes (Other)
  Sender: FDA-Public Use
  Company Number: JP-JNJFOC-20191006092

PATIENT
  Age: 84 Year
  Sex: Male
  Weight: 50.5 kg

DRUGS (8)
  1. MIYA-BM [Concomitant]
     Active Substance: CLOSTRIDIUM BUTYRICUM SPORES STRAIN M-55
     Dosage: PERORAL MEDICINE
     Route: 048
  2. TREMFYA [Suspect]
     Active Substance: GUSELKUMAB
     Indication: PSORIASIS
     Dosage: EVERY 4 OR 8 WEEKS
     Route: 058
     Dates: start: 20191001
  3. TAKECAB [Concomitant]
     Active Substance: VONOPRAZAN FUMURATE
     Route: 048
  4. NEUROVITAN                         /00280501/ [Concomitant]
     Dosage: OCTOTIAMINE/B2/B6/B12
     Route: 048
  5. FERROMIA [Concomitant]
     Active Substance: SODIUM FERROUS CITRATE
     Dosage: PRE ORAL MEDICINE
     Route: 048
  6. THYRADIN [Concomitant]
     Active Substance: LEVOTHYROXINE
     Dosage: DRIED THYROID
  7. ACOFIDE [Concomitant]
     Active Substance: ACOTIAMIDE HYDROCHLORIDE
     Route: 048
  8. CICLOSPORIN [Concomitant]
     Active Substance: CYCLOSPORINE
     Indication: PSORIASIS
     Route: 065

REACTIONS (1)
  - Prostate cancer [Unknown]
